FAERS Safety Report 18315686 (Version 1)
Quarter: 2020Q3

REPORT INFORMATION
  Report Type: Spontaneous
  Country: US (occurrence: US)
  Receive Date: 20200926
  Receipt Date: 20200926
  Transmission Date: 20201103
  Serious: No
  Sender: FDA-Public Use
  Company Number: US-SA-2020SA263356

PATIENT

DRUGS (1)
  1. FABRAZYME [Suspect]
     Active Substance: AGALSIDASE BETA
     Route: 065

REACTIONS (2)
  - Inappropriate schedule of product administration [Unknown]
  - Exposure during pregnancy [Unknown]

NARRATIVE: CASE EVENT DATE: 202007
